FAERS Safety Report 5036756-7 (Version None)
Quarter: 2006Q2

REPORT INFORMATION
  Report Type: 
  Country: None (occurrence: None)
  Receive Date: 20060601
  Receipt Date: 20060306
  Transmission Date: 20061013
  Serious: No
  Sender: FDA-Public Use
  Company Number: USA0510110571

PATIENT
  Age: 54 Year
  Sex: Female
  Weight: 53.5 kg

DRUGS (6)
  1. CYMBALTA [Suspect]
     Indication: DEPRESSION
     Dosage: 30 MG
     Dates: start: 20050125, end: 20050712
  2. ATIVAN [Concomitant]
  3. ZOCOR [Concomitant]
  4. CARDIZEM [Concomitant]
  5. ESTRACE [Concomitant]
  6. PREVACID [Concomitant]

REACTIONS (4)
  - AMNESIA [None]
  - ANAEMIA [None]
  - CONTUSION [None]
  - DYSURIA [None]
